FAERS Safety Report 18201472 (Version 5)
Quarter: 2020Q4

REPORT INFORMATION
  Report Type: Spontaneous
  Country: JP (occurrence: JP)
  Receive Date: 20200827
  Receipt Date: 20201211
  Transmission Date: 20210113
  Serious: Yes (Hospitalization, Other)
  Sender: FDA-Public Use
  Company Number: JP-GLAXOSMITHKLINE-JP2020JPN167778

PATIENT
  Age: 86 Year
  Sex: Male
  Weight: 67 kg

DRUGS (3)
  1. TRELEGY ELLIPTA [Suspect]
     Active Substance: FLUTICASONE FUROATE\UMECLIDINIUM BROMIDE\VILANTEROL TRIFENATATE
     Dosage: 100 UG, QD
     Route: 055
     Dates: start: 20190701
  2. ROSUVASTATIN (ROSUVASTATIN CALCIUM) [Concomitant]
     Active Substance: ROSUVASTATIN CALCIUM
     Indication: HYPERCHOLESTEROLAEMIA
     Dosage: 2.5 MG, QD
     Route: 055
  3. NUCALA [Suspect]
     Active Substance: MEPOLIZUMAB
     Indication: ASTHMA
     Dosage: 100 MG PER MONTH
     Route: 058
     Dates: start: 201712, end: 202008

REACTIONS (3)
  - Lung neoplasm malignant [Unknown]
  - Pleural effusion [Not Recovered/Not Resolved]
  - Tumour associated fever [Not Recovered/Not Resolved]

NARRATIVE: CASE EVENT DATE: 20200814
